FAERS Safety Report 21477076 (Version 1)
Quarter: 2022Q4

REPORT INFORMATION
  Report Type: Spontaneous
  Country: US (occurrence: US)
  Receive Date: 20221019
  Receipt Date: 20221019
  Transmission Date: 20230112
  Serious: Yes (Other)
  Sender: FDA-Public Use
  Company Number: US-ABBVIE-4165248

PATIENT
  Age: 65 Year
  Sex: Male

DRUGS (1)
  1. VENETOCLAX [Suspect]
     Active Substance: VENETOCLAX
     Indication: Chronic lymphocytic leukaemia
     Route: 048
     Dates: start: 20220616

REACTIONS (6)
  - Acute kidney injury [Unknown]
  - Tumour lysis syndrome [Unknown]
  - Toxicity to various agents [Unknown]
  - Staphylococcal sepsis [Unknown]
  - Glomerulonephritis [Unknown]
  - Anti-neutrophil cytoplasmic antibody positive vasculitis [Unknown]

NARRATIVE: CASE EVENT DATE: 20220101
